FAERS Safety Report 8159469-1 (Version None)
Quarter: 2012Q1

REPORT INFORMATION
  Report Type: 
  Country: None (occurrence: None)
  Receive Date: 20120223
  Receipt Date: 20111215
  Transmission Date: 20120608
  Serious: No
  Sender: FDA-Public Use
  Company Number: FR-UCBSA-045234

PATIENT
  Age: 17 Year
  Sex: Male

DRUGS (3)
  1. VIMPAT [Suspect]
     Indication: PARTIAL SEIZURES
     Route: 048
     Dates: start: 20110601, end: 20111101
  2. KEPPRA [Suspect]
     Indication: PARTIAL SEIZURES
     Dosage: DAILY DOSE: 3 G
     Route: 048
     Dates: start: 20110601
  3. HALDOL [Concomitant]
     Indication: AGGRESSION
     Route: 048
     Dates: start: 20110701

REACTIONS (3)
  - BRADYCARDIA [None]
  - DRUG INEFFECTIVE [None]
  - DIZZINESS EXERTIONAL [None]
